FAERS Safety Report 7114665-7 (Version None)
Quarter: 2010Q4

REPORT INFORMATION
  Report Type: 
  Country: None (occurrence: None)
  Receive Date: 20101122
  Receipt Date: 20101112
  Transmission Date: 20110411
  Serious: Yes (Hospitalization)
  Sender: FDA-Public Use
  Company Number: US-BIOGENIDEC-2010BI040398

PATIENT
  Age: 21 Year
  Sex: Female
  Weight: 83 kg

DRUGS (2)
  1. TYSABRI [Suspect]
     Indication: MULTIPLE SCLEROSIS
     Route: 042
     Dates: start: 20091001, end: 20100301
  2. TYSABRI [Suspect]
     Route: 042
     Dates: start: 20100501, end: 20100701

REACTIONS (6)
  - ASTHENIA [None]
  - HEART RATE IRREGULAR [None]
  - MOBILITY DECREASED [None]
  - POLYCYSTIC OVARIES [None]
  - TYPE 2 DIABETES MELLITUS [None]
  - URINARY INCONTINENCE [None]
